FAERS Safety Report 25578643 (Version 5)
Quarter: 2025Q4

REPORT INFORMATION
  Report Type: Spontaneous
  Country: US (occurrence: US)
  Receive Date: 20250718
  Receipt Date: 20251231
  Transmission Date: 20260118
  Serious: Yes (Disabling, Other)
  Sender: PFIZER
  Company Number: US-PFIZER INC-202500144383

PATIENT
  Age: 62 Year
  Sex: Female
  Weight: 53.52 kg

DRUGS (3)
  1. PREMARIN [Suspect]
     Active Substance: ESTROGENS, CONJUGATED
     Indication: Menopausal disorder
     Dosage: 0.5 GRAM TWICE A WEEKLY INSERTED VAGINALLY
     Route: 067
  2. PREMARIN [Suspect]
     Active Substance: ESTROGENS, CONJUGATED
     Indication: Vulvovaginal dryness
     Dosage: 0.5 GRAM TWICE A WEEKLY INSERTED VAGINALLY
     Route: 067
     Dates: start: 20250715
  3. PREMARIN [Suspect]
     Active Substance: ESTROGENS, CONJUGATED
     Indication: Atrophy

REACTIONS (4)
  - Hip arthroplasty [Recovering/Resolving]
  - Poor quality product administered [Unknown]
  - Product colour issue [Unknown]
  - Product packaging issue [Unknown]

NARRATIVE: CASE EVENT DATE: 20250602
